FAERS Safety Report 4778928-2 (Version None)
Quarter: 2005Q3

REPORT INFORMATION
  Report Type: 
  Country: None (occurrence: None)
  Receive Date: 20050922
  Receipt Date: 20050919
  Transmission Date: 20060218
  Serious: No
  Sender: FDA-Public Use
  Company Number: SU-2005-003178

PATIENT
  Sex: Male

DRUGS (3)
  1. OLMETEC [Suspect]
     Indication: HYPERTENSION
     Dates: start: 20050201
  2. MINIPRESS [Concomitant]
  3. DILTIAZEM HYDROCHLORIDE [Concomitant]

REACTIONS (1)
  - BLOOD PRESSURE INADEQUATELY CONTROLLED [None]
